FAERS Safety Report 9377657 (Version 1)
Quarter: 2013Q2

REPORT INFORMATION
  Report Type: Spontaneous
  Country: CN (occurrence: None)
  Receive Date: 20130625
  Receipt Date: 20130625
  Transmission Date: 20140414
  Serious: Yes (Hospitalization)
  Sender: FDA-Public Use
  Company Number: SYM-2013-04805

PATIENT
  Age: 25 Year
  Sex: Female

DRUGS (1)
  1. NIFEDIPINE [Suspect]
     Indication: SUICIDE ATTEMPT

REACTIONS (5)
  - Suicide attempt [None]
  - Hypotension [None]
  - Overdose [None]
  - Loss of consciousness [None]
  - Heart rate increased [None]
